FAERS Safety Report 8166607-3 (Version None)
Quarter: 2012Q1

REPORT INFORMATION
  Report Type: 
  Country: None (occurrence: None)
  Receive Date: 20120227
  Receipt Date: 20120220
  Transmission Date: 20120608
  Serious: Yes (Hospitalization)
  Sender: FDA-Public Use
  Company Number: GB-GENZYME-CLOF-1001830

PATIENT
  Sex: Male
  Weight: 79 kg

DRUGS (7)
  1. EVOLTRA [Suspect]
     Dosage: 30 MG, UNK
     Route: 042
     Dates: start: 20080603, end: 20080607
  2. DAUNORUBICIN HCL [Suspect]
     Dosage: 100 MG, QOD
     Route: 042
     Dates: start: 20080603, end: 20080607
  3. EVOLTRA [Suspect]
     Indication: ACUTE LEUKAEMIA
     Dosage: 40 MG, UNK
     Route: 042
     Dates: start: 20080124, end: 20080128
  4. HYDROXYUREA [Concomitant]
     Indication: PRODUCT USED FOR UNKNOWN INDICATION
     Dosage: 1 G, QD
     Route: 048
     Dates: start: 20091219
  5. DAUNORUBICIN HCL [Suspect]
     Indication: ACUTE LEUKAEMIA
     Dosage: 100 MG, QOD
     Route: 042
     Dates: start: 20080124, end: 20080128
  6. DAUNORUBICIN HCL [Suspect]
     Dosage: 100 MG, UNK
     Route: 042
     Dates: start: 20080819, end: 20080821
  7. CYTARABINE [Suspect]
     Indication: ACUTE LEUKAEMIA
     Dosage: 200 MG, UNK
     Route: 042
     Dates: start: 20080819, end: 20080823

REACTIONS (3)
  - DYSPHAGIA [None]
  - PNEUMONIA [None]
  - FUNGAL INFECTION [None]
